FAERS Safety Report 5503450-5 (Version None)
Quarter: 2007Q4

REPORT INFORMATION
  Report Type: 
  Country: None (occurrence: None)
  Receive Date: 20071031
  Receipt Date: 20071019
  Transmission Date: 20080405
  Serious: Yes (Hospitalization)
  Sender: FDA-Public Use
  Company Number: CA-PFIZER INC-2007088779

PATIENT
  Age: 46 Year
  Sex: Male

DRUGS (3)
  1. LYRICA [Suspect]
  2. TYLENOL (CAPLET) [Concomitant]
  3. IMMUNE GLOBULIN INTRAVENOUS (HUMAN) [Concomitant]
     Dates: start: 20071004, end: 20071006

REACTIONS (1)
  - ERYTHEMA [None]
